FAERS Safety Report 8397961-5 (Version None)
Quarter: 2012Q2

REPORT INFORMATION
  Report Type: 
  Country: None (occurrence: None)
  Receive Date: 20120531
  Receipt Date: 20120525
  Transmission Date: 20120825
  Serious: Yes (Other)
  Sender: FDA-Public Use
  Company Number: IT-PFIZER INC-2012127841

PATIENT
  Age: 46 Year
  Sex: Female

DRUGS (1)
  1. CARBOPLATIN [Suspect]
     Dosage: 340 MG, CYCLIC
     Route: 042
     Dates: start: 20120327, end: 20120518

REACTIONS (5)
  - DYSPEPSIA [None]
  - CHEST DISCOMFORT [None]
  - TACHYCARDIA [None]
  - FACE OEDEMA [None]
  - ERYTHEMA [None]
